FAERS Safety Report 16048821 (Version 1)
Quarter: 2019Q1

REPORT INFORMATION
  Report Type: Spontaneous
  Country: US (occurrence: US)
  Receive Date: 20190307
  Receipt Date: 20190307
  Transmission Date: 20190418
  Serious: No
  Sender: FDA-Public Use
  Company Number: US-ASTRAZENECA-2019SE25355

PATIENT

DRUGS (2)
  1. BRILINTA [Suspect]
     Active Substance: TICAGRELOR
     Route: 048
     Dates: start: 201812
  2. ASPIRIN. [Concomitant]
     Active Substance: ASPIRIN
     Dosage: ONLY IN MORNING

REACTIONS (5)
  - Internal haemorrhage [Unknown]
  - Arthralgia [Unknown]
  - Dyspnoea [Unknown]
  - Chest pain [Unknown]
  - Anxiety [Unknown]
